FAERS Safety Report 20232937 (Version 1)
Quarter: 2021Q4

REPORT INFORMATION
  Report Type: Spontaneous
  Country: US (occurrence: None)
  Receive Date: 20211224
  Receipt Date: 20211224
  Transmission Date: 20220303
  Serious: Yes (Death)
  Sender: FDA-Public Use
  Company Number: None

PATIENT
  Age: 17 Year
  Sex: Female
  Weight: 85.4 kg

DRUGS (6)
  1. CYTARABINE [Suspect]
     Active Substance: CYTARABINE
     Indication: Product used for unknown indication
     Dates: end: 20211220
  2. DAUNORUBICIN [Suspect]
     Active Substance: DAUNORUBICIN
     Indication: Product used for unknown indication
     Dates: end: 20211214
  3. ZINECARD [Suspect]
     Active Substance: DEXRAZOXANE HYDROCHLORIDE
     Indication: Product used for unknown indication
  4. MYLOTARG [Suspect]
     Active Substance: GEMTUZUMAB OZOGAMICIN
     Indication: Product used for unknown indication
     Dates: end: 20211215
  5. HYDROCORTISONE [Suspect]
     Active Substance: HYDROCORTISONE
     Indication: Product used for unknown indication
     Dates: end: 20211217
  6. METHOTREXATE [Suspect]
     Active Substance: METHOTREXATE
     Indication: Product used for unknown indication
     Dates: end: 20211217

REACTIONS (17)
  - Acute respiratory failure [None]
  - Dependence on respirator [None]
  - Pneumothorax [None]
  - Hypervolaemia [None]
  - Haemofiltration [None]
  - Packed red blood cell transfusion [None]
  - Acute kidney injury [None]
  - Platelet transfusion [None]
  - Transfusion [None]
  - Blood uric acid increased [None]
  - Arrhythmia [None]
  - Hypotension [None]
  - Acute myeloid leukaemia [None]
  - Acidosis [None]
  - Pulmonary haemorrhage [None]
  - Febrile neutropenia [None]
  - Hypertension [None]

NARRATIVE: CASE EVENT DATE: 20211221
